FAERS Safety Report 8537413-2 (Version None)
Quarter: 2012Q3

REPORT INFORMATION
  Report Type: 
  Country: None (occurrence: None)
  Receive Date: 20120725
  Receipt Date: 20120723
  Transmission Date: 20120928
  Serious: Yes (Death)
  Sender: FDA-Public Use
  Company Number: US-CELGENEUS-163-21880-12062230

PATIENT
  Sex: Female

DRUGS (30)
  1. REVLIMID [Suspect]
     Indication: MULTIPLE MYELOMA
     Dosage: 7.5 MILLIGRAM
     Route: 048
     Dates: start: 20120520, end: 20120101
  2. DEXAMETHASONE [Concomitant]
     Dosage: 4 MILLIGRAM
     Route: 065
  3. COUMADIN [Concomitant]
     Dosage: 5 MILLIGRAM
     Route: 065
  4. SIMVASTATIN [Concomitant]
     Dosage: 40 MILLIGRAM
     Route: 065
  5. PROAIR HFA [Concomitant]
     Dosage: 108 MILLIGRAM
     Route: 065
  6. REVLIMID [Suspect]
  7. MIRALAX [Concomitant]
     Route: 065
  8. LORTAB [Concomitant]
     Dosage: 7.5
     Route: 065
  9. PEPCID [Concomitant]
     Dosage: 40 MILLIGRAM
     Route: 065
  10. LASIX [Concomitant]
     Dosage: 40 MILLIGRAM
     Route: 065
  11. RED BLOOD CELLS [Concomitant]
     Dosage: 2 IU (INTERNATIONAL UNIT)
     Route: 041
     Dates: start: 20120206, end: 20120206
  12. VITAMIN B-12 [Concomitant]
     Dosage: 1000 MILLIGRAM
     Route: 065
  13. CLARITIN [Concomitant]
     Dosage: 10 MILLIGRAM
     Route: 065
  14. FLECTOR [Concomitant]
     Dosage: 1.3 PERCENT
     Route: 065
  15. RED BLOOD CELLS [Concomitant]
     Dosage: 2 IU (INTERNATIONAL UNIT)
     Route: 041
     Dates: start: 20120103, end: 20120103
  16. VOLTAREN [Concomitant]
     Dosage: 1 PERCENT
     Route: 065
  17. ALBUTEROL [Concomitant]
     Dosage: 90 MICROGRAM
     Route: 065
  18. ACYCLOVIR [Concomitant]
     Dosage: 800 MILLIGRAM
     Route: 065
  19. TYLENOL [Concomitant]
     Dosage: 325 MILLIGRAM
     Route: 065
  20. HUMULIN R [Concomitant]
     Dosage: 70/30
     Route: 065
  21. FOLIC ACID [Concomitant]
     Dosage: 1 MILLIGRAM
     Route: 065
  22. ALPRAZOLAM [Concomitant]
     Dosage: .5 MILLIGRAM
     Route: 065
  23. LEVOTHYROXINE SODIUM [Concomitant]
     Dosage: .15 MILLIGRAM
     Route: 065
  24. COLACE [Concomitant]
     Dosage: 200 MILLIGRAM
     Route: 065
  25. RED BLOOD CELLS [Concomitant]
     Route: 041
     Dates: start: 20120305, end: 20120305
  26. LISINOPRIL [Concomitant]
     Dosage: 5 MILLIGRAM
     Route: 065
  27. ALLOPURINOL [Concomitant]
     Dosage: 100 MILLIGRAM
     Route: 065
  28. AMLODIPINE [Concomitant]
     Dosage: 10 MILLIGRAM
     Route: 065
  29. OXYGEN [Concomitant]
     Dosage: 2 LITERS
     Route: 065
  30. NITROGLYCERIN [Concomitant]
     Dosage: .8 MILLIGRAM
     Route: 065

REACTIONS (1)
  - MYELODYSPLASTIC SYNDROME [None]
